FAERS Safety Report 4865171-1 (Version None)
Quarter: 2005Q4

REPORT INFORMATION
  Report Type: 
  Country: None (occurrence: None)
  Receive Date: 20051223
  Receipt Date: 20051206
  Transmission Date: 20060501
  Serious: Yes (Hospitalization)
  Sender: FDA-Public Use
  Company Number: 2005CG02028

PATIENT
  Age: 62 Year
  Sex: Female

DRUGS (4)
  1. DIPRIVAN [Suspect]
     Indication: ANAESTHESIA
     Route: 042
     Dates: start: 20050129, end: 20050129
  2. MIDAZOLAM HCL [Suspect]
     Indication: ANAESTHESIA
     Route: 042
     Dates: start: 20050129, end: 20050129
  3. TRACRIUM [Suspect]
     Indication: ANAESTHESIA
     Route: 042
     Dates: start: 20050129, end: 20050129
  4. SUFENTA [Suspect]
     Indication: ANAESTHESIA
     Route: 042
     Dates: start: 20050129, end: 20050129

REACTIONS (4)
  - ASPARTATE AMINOTRANSFERASE INCREASED [None]
  - BLOOD ALKALINE PHOSPHATASE INCREASED [None]
  - GAMMA-GLUTAMYLTRANSFERASE INCREASED [None]
  - HYPERTRIGLYCERIDAEMIA [None]
